FAERS Safety Report 7780947-9 (Version None)
Quarter: 2011Q3

REPORT INFORMATION
  Report Type: 
  Country: None (occurrence: None)
  Receive Date: 20110927
  Receipt Date: 20110921
  Transmission Date: 20111222
  Serious: No
  Sender: FDA-Public Use
  Company Number: US-TEVA-299705USA

PATIENT
  Sex: Female

DRUGS (1)
  1. PROAIR HFA [Suspect]
     Route: 055
     Dates: start: 20110817

REACTIONS (3)
  - COUGH [None]
  - HEART RATE INCREASED [None]
  - TREMOR [None]
